FAERS Safety Report 15226332 (Version 3)
Quarter: 2019Q2

REPORT INFORMATION
  Report Type: Spontaneous
  Country: JP (occurrence: JP)
  Receive Date: 20180801
  Receipt Date: 20190415
  Transmission Date: 20190711
  Serious: Yes (Hospitalization)
  Sender: FDA-Public Use
  Company Number: JP-ROCHE-2163173

PATIENT
  Sex: Female
  Weight: 43 kg

DRUGS (11)
  1. NEXIUM [Concomitant]
     Active Substance: ESOMEPRAZOLE MAGNESIUM
     Indication: PROPHYLAXIS
     Route: 048
     Dates: end: 20180608
  2. CELLCEPT [Suspect]
     Active Substance: MYCOPHENOLATE MOFETIL\MYCOPHENOLATE MOFETIL HYDROCHLORIDE
     Route: 048
     Dates: start: 20180105, end: 20180517
  3. MYONAL (JAPAN) [Concomitant]
     Active Substance: EPERISONE HYDROCHLORIDE
     Indication: MIGRAINE
     Dosage: AS REQUIRED
     Route: 048
     Dates: start: 20170224, end: 20180628
  4. DIOVAN [Concomitant]
     Active Substance: VALSARTAN
     Indication: LUPUS NEPHRITIS
     Route: 048
     Dates: start: 20161013, end: 20180608
  5. LOXONIN [Concomitant]
     Active Substance: LOXOPROFEN SODIUM
     Indication: MIGRAINE
     Dosage: AS REQUIRED.
     Route: 048
     Dates: end: 20180628
  6. CELLCEPT [Suspect]
     Active Substance: MYCOPHENOLATE MOFETIL\MYCOPHENOLATE MOFETIL HYDROCHLORIDE
     Route: 048
     Dates: start: 20180518, end: 20180608
  7. IMIGRAN [Concomitant]
     Active Substance: SUMATRIPTAN SUCCINATE
     Indication: MIGRAINE
     Dosage: AS REQUIRED
     Route: 048
     Dates: start: 20160617, end: 20180628
  8. CELLCEPT [Suspect]
     Active Substance: MYCOPHENOLATE MOFETIL\MYCOPHENOLATE MOFETIL HYDROCHLORIDE
     Indication: LUPUS NEPHRITIS
     Route: 048
     Dates: start: 20171208, end: 20180104
  9. TRYPTANOL [Concomitant]
     Active Substance: AMITRIPTYLINE
     Indication: MIGRAINE
     Route: 048
     Dates: start: 20170127
  10. PREDONINE [Concomitant]
     Active Substance: PREDNISOLONE
     Indication: LUPUS NEPHRITIS
     Route: 048
  11. EDIROL [Concomitant]
     Active Substance: ELDECALCITOL
     Indication: PROPHYLAXIS
     Route: 048
     Dates: end: 20180608

REACTIONS (2)
  - Maternal exposure during pregnancy [Unknown]
  - Morning sickness [Unknown]

NARRATIVE: CASE EVENT DATE: 2018
